FAERS Safety Report 10552361 (Version 1)
Quarter: 2014Q4

REPORT INFORMATION
  Report Type: Spontaneous
  Country: US (occurrence: None)
  Receive Date: 20141023
  Receipt Date: 20141023
  Transmission Date: 20150529
  Serious: No
  Sender: FDA-Public Use
  Company Number: AP356-01298-SPO-US

PATIENT
  Age: 60 Year
  Sex: Female
  Weight: 88.2 kg

DRUGS (6)
  1. UNSPECIFIED PAIN MEDICATION [Concomitant]
  2. DILTIAZEM 24 ER (DILTIAZEM HYDROCHLORIDE) [Concomitant]
  3. LOSARTAN [Concomitant]
     Active Substance: LOSARTAN
  4. GABAPENTIN. [Concomitant]
     Active Substance: GABAPENTIN
  5. BELVIQ [Suspect]
     Active Substance: LORCASERIN HYDROCHLORIDE
     Indication: WEIGHT DECREASED
     Route: 048
     Dates: start: 20140826
  6. BYSTOLIC [Concomitant]
     Active Substance: NEBIVOLOL HYDROCHLORIDE

REACTIONS (1)
  - Drug ineffective [None]

NARRATIVE: CASE EVENT DATE: 20140826
